FAERS Safety Report 9465072 (Version 2)
Quarter: 2013Q3

REPORT INFORMATION
  Report Type: Spontaneous
  Country: DE (occurrence: DE)
  Receive Date: 20130819
  Receipt Date: 20130819
  Transmission Date: 20140515
  Serious: Yes (Hospitalization)
  Sender: FDA-Public Use
  Company Number: DE-B.I. PHARMACEUTICALS,INC./RIDGEFIELD-2013-DE-01644DE

PATIENT
  Age: 68 Year
  Sex: Female
  Weight: 78 kg

DRUGS (11)
  1. PRADAXA [Suspect]
     Indication: ATRIAL FIBRILLATION
     Dosage: 300 MG
     Dates: start: 20130605
  2. XARELTO [Suspect]
     Indication: ATRIAL FIBRILLATION
     Dosage: 30 MG
     Dates: start: 20130427
  3. XARELTO [Suspect]
     Dosage: 20 MG
     Dates: start: 20130511, end: 20130604
  4. METOPROLOL [Concomitant]
     Indication: HYPERTENSION
  5. ATARCAND [Concomitant]
     Indication: HYPERTENSION
     Dosage: STRENGTH : 8MG PLUS 12,5MG
     Dates: start: 20101019
  6. EUTHYROX [Concomitant]
  7. ATACAND 8MG PLUS 12.5MG [Concomitant]
     Indication: HYPERTENSION
     Dosage: 1 ANZ
     Dates: start: 20101019
  8. METO HEXAL SUCC 47.5 MG [Concomitant]
     Indication: HYPERTENSION
     Dates: start: 20101019
  9. EUTHYROX 100 [Concomitant]
     Indication: THYROID DISORDER
     Dosage: 1 ANZ
  10. JUNIK [Concomitant]
     Indication: ASTHMA
     Dosage: 2 PUFFS; DAILY DOSE-4 PUFFS
  11. BERODUAL [Concomitant]
     Indication: ASTHMA

REACTIONS (9)
  - Electric shock [Unknown]
  - Blood pressure decreased [Not Recovered/Not Resolved]
  - Fatigue [Not Recovered/Not Resolved]
  - Skin reaction [Not Recovered/Not Resolved]
  - Chills [Not Recovered/Not Resolved]
  - Hypotension [Recovered/Resolved]
  - Fatigue [Recovered/Resolved]
  - Fatigue [Recovered/Resolved]
  - Atrial fibrillation [Unknown]
